FAERS Safety Report 26053245 (Version 1)
Quarter: 2025Q4

REPORT INFORMATION
  Report Type: Spontaneous
  Country: US (occurrence: None)
  Receive Date: 20251114
  Receipt Date: 20251114
  Transmission Date: 20260117
  Serious: Yes (Hospitalization)
  Sender: FDA-CTU
  Company Number: None

PATIENT
  Age: 71 Year
  Sex: Male
  Weight: 134.3 kg

DRUGS (4)
  1. SULFAMETHOXAZOLE\TRIMETHOPRIM [Suspect]
     Active Substance: SULFAMETHOXAZOLE\TRIMETHOPRIM
     Indication: Antibiotic prophylaxis
     Dosage: FREQUENCY : TWICE A DAY;?
     Route: 048
     Dates: start: 20250809, end: 20250811
  2. CEFEPIME [Suspect]
     Active Substance: CEFEPIME HYDROCHLORIDE
  3. CLINDAMYCIN [Suspect]
     Active Substance: CLINDAMYCIN
  4. VANCOMYCIN [Suspect]
     Active Substance: VANCOMYCIN

REACTIONS (7)
  - Blister [None]
  - Scrotal exfoliation [None]
  - Scrotal swelling [None]
  - Epiglottitis [None]
  - Oropharyngeal swelling [None]
  - Dysphagia [None]
  - Oral mucosal blistering [None]

NARRATIVE: CASE EVENT DATE: 20250811
